FAERS Safety Report 17051535 (Version 1)
Quarter: 2019Q4

REPORT INFORMATION
  Report Type: Spontaneous
  Country: NO (occurrence: NO)
  Receive Date: 20191120
  Receipt Date: 20191120
  Transmission Date: 20200122
  Serious: Yes (Hospitalization)
  Sender: FDA-Public Use
  Company Number: NO-BIOGEN-2019BI00808545

PATIENT
  Age: 37 Year
  Sex: Female

DRUGS (1)
  1. TYSABRI [Suspect]
     Active Substance: NATALIZUMAB
     Indication: MULTIPLE SCLEROSIS
     Dosage: 300 MG GIVEN 4 TIMES: 08/JUL/2019, 07/AUG/2019, 05/SEPT/2019 AND 03/OCT/2019
     Route: 065
     Dates: start: 20190708, end: 20191003

REACTIONS (1)
  - Cervix carcinoma [Unknown]

NARRATIVE: CASE EVENT DATE: 20190913
